FAERS Safety Report 13806798 (Version 1)
Quarter: 2017Q3

REPORT INFORMATION
  Report Type: Report from Study
  Country: US (occurrence: US)
  Receive Date: 20170728
  Receipt Date: 20170728
  Transmission Date: 20171127
  Serious: No
  Sender: FDA-Public Use
  Company Number: US-AMGEN-USASL2017089287

PATIENT
  Sex: Male

DRUGS (1)
  1. REPATHA [Suspect]
     Active Substance: EVOLOCUMAB
     Indication: PRODUCT USED FOR UNKNOWN INDICATION
     Dosage: 140 MG, Q2WK
     Route: 058
     Dates: start: 201703, end: 201706

REACTIONS (8)
  - Influenza [Unknown]
  - Myalgia [Unknown]
  - Sleep disorder [Unknown]
  - Nasopharyngitis [Unknown]
  - Tendon pain [Not Recovered/Not Resolved]
  - Peripheral swelling [Unknown]
  - Hypersensitivity [Unknown]
  - Musculoskeletal disorder [Unknown]

NARRATIVE: CASE EVENT DATE: 2017
